FAERS Safety Report 9671400 (Version 1)
Quarter: 2013Q4

REPORT INFORMATION
  Report Type: Spontaneous
  Country: US (occurrence: None)
  Receive Date: 20131105
  Receipt Date: 20131105
  Transmission Date: 20140711
  Serious: Yes (Disabling)
  Sender: FDA-Public Use
  Company Number: None

PATIENT
  Age: 54 Year
  Sex: Female
  Weight: 103.42 kg

DRUGS (1)
  1. ALBUTEROL SULFATE [Suspect]
     Indication: ASTHMA
     Dosage: 1 TREATMENT VIAL FOUR TIMES DAILY
     Route: 055
     Dates: start: 20131007, end: 20131031

REACTIONS (7)
  - Muscle spasms [None]
  - Blood potassium decreased [None]
  - Dyspnoea [None]
  - Cough [None]
  - Diabetes mellitus [None]
  - Asthenia [None]
  - Fatigue [None]
